FAERS Safety Report 11287274 (Version 1)
Quarter: 2015Q3

REPORT INFORMATION
  Report Type: Not Available
  Country: CA (occurrence: CA)
  Receive Date: 20150721
  Receipt Date: 20150721
  Transmission Date: 20151125
  Serious: Yes (Hospitalization, Other)
  Sender: FDA-Public Use
  Company Number: CA-BEH-2015052544

PATIENT
  Age: 53 Year
  Sex: Male
  Weight: 49 kg

DRUGS (1)
  1. PRIVIGEN [Suspect]
     Active Substance: HUMAN IMMUNOGLOBULIN G
     Indication: MULTIFOCAL MOTOR NEUROPATHY
     Route: 042

REACTIONS (3)
  - Dyspnoea [Unknown]
  - Haemolytic anaemia [Unknown]
  - Fatigue [Unknown]
